FAERS Safety Report 6146746-9 (Version None)
Quarter: 2009Q2

REPORT INFORMATION
  Report Type: 
  Country: None (occurrence: None)
  Receive Date: 20090407
  Receipt Date: 20090401
  Transmission Date: 20091009
  Serious: Yes (Death)
  Sender: FDA-Public Use
  Company Number: US-AVENTIS-200913321GDDC

PATIENT
  Age: 52 Year
  Sex: Female
  Weight: 55.79 kg

DRUGS (3)
  1. DOCETAXEL [Suspect]
     Route: 042
     Dates: start: 20070823, end: 20071206
  2. CYTOXAN [Suspect]
     Route: 042
     Dates: start: 20070823, end: 20071206
  3. ADRIAMYCIN PFS [Suspect]
     Route: 042
     Dates: start: 20070823, end: 20071206

REACTIONS (1)
  - CONGESTIVE CARDIOMYOPATHY [None]
